FAERS Safety Report 4964365-4 (Version None)
Quarter: 2006Q1

REPORT INFORMATION
  Report Type: 
  Country: None (occurrence: None)
  Receive Date: 20060331
  Receipt Date: 20060320
  Transmission Date: 20060701
  Serious: Yes (Hospitalization, Other)
  Sender: FDA-Public Use
  Company Number: ST-2006-008871

PATIENT
  Age: 59 Year
  Sex: Male

DRUGS (5)
  1. OLMETEC [Suspect]
     Indication: HYPERTENSION
     Dosage: 20 MG QD PO
     Route: 048
     Dates: start: 20060111, end: 20060202
  2. NEORAL [Suspect]
     Indication: IMMUNOSUPPRESSION
     Dosage: 175 MG DAILY PO
     Route: 048
     Dates: start: 20050930, end: 20060202
  3. CELLCEPT [Concomitant]
  4. URINORM [Concomitant]
  5. OMEPRAZON [Concomitant]

REACTIONS (3)
  - HAEMODIALYSIS [None]
  - RENAL ARTERY STENOSIS [None]
  - RENAL FAILURE ACUTE [None]
